FAERS Safety Report 18880584 (Version 3)
Quarter: 2021Q4

REPORT INFORMATION
  Report Type: Spontaneous
  Country: CA (occurrence: CA)
  Receive Date: 20210211
  Receipt Date: 20211201
  Transmission Date: 20220303
  Serious: Yes (Hospitalization, Other)
  Sender: FDA-Public Use
  Company Number: CA-SAMSUNG BIOEPIS-SB-2021-02838

PATIENT
  Age: 56 Year
  Sex: Female
  Weight: 82 kg

DRUGS (6)
  1. INFLIXIMAB [Suspect]
     Active Substance: INFLIXIMAB
     Indication: Sarcoidosis
     Route: 042
  2. INFLIXIMAB [Suspect]
     Active Substance: INFLIXIMAB
     Indication: Neurosarcoidosis
     Route: 042
  3. INFLIXIMAB [Suspect]
     Active Substance: INFLIXIMAB
     Route: 042
  4. PREDNISONE [Concomitant]
     Active Substance: PREDNISONE
     Indication: Product used for unknown indication
     Route: 065
  5. SEPTRA [Concomitant]
     Active Substance: SULFAMETHOXAZOLE\TRIMETHOPRIM
     Indication: Sarcoidosis
     Dosage: UNKNOWN
     Route: 065
  6. MYCOPHENOLATE MOFETIL [Concomitant]
     Active Substance: MYCOPHENOLATE MOFETIL
     Indication: Blood sodium abnormal
     Dosage: UNKNOWN
     Route: 065

REACTIONS (15)
  - Blood sodium abnormal [Recovered/Resolved]
  - Coma [Recovered/Resolved]
  - Acarodermatitis [Recovered/Resolved]
  - Blood pressure fluctuation [Recovered/Resolved]
  - Energy increased [Recovered/Resolved]
  - Fatigue [Recovered/Resolved]
  - Fungal skin infection [Recovered/Resolved]
  - Rash [Recovered/Resolved]
  - Rash papular [Recovered/Resolved]
  - Weight increased [Recovered/Resolved]
  - Therapeutic response unexpected [Recovered/Resolved]
  - Drug effective for unapproved indication [Recovered/Resolved]
  - Off label use [Recovered/Resolved]
  - Product use in unapproved indication [Recovered/Resolved]
  - Intentional product use issue [Recovered/Resolved]
